FAERS Safety Report 5925320-0 (Version None)
Quarter: 2008Q4

REPORT INFORMATION
  Report Type: 
  Country: None (occurrence: None)
  Receive Date: 20081021
  Receipt Date: 20081008
  Transmission Date: 20090506
  Serious: Yes (Disabling, Other)
  Sender: FDA-Public Use
  Company Number: US-ELI_LILLY_AND_COMPANY-US200810002501

PATIENT
  Sex: Female

DRUGS (4)
  1. CYMBALTA [Suspect]
     Indication: DEPRESSION
     Dosage: 60 MG, DAILY (1/D)
     Route: 065
     Dates: start: 20060101
  2. CRESTOR [Concomitant]
     Dosage: UNK, UNKNOWN
     Route: 065
  3. TYSABRI [Concomitant]
     Dosage: UNK, UNKNOWN
     Route: 065
  4. CHOLESTEROL- AND TRIGLYCERIDE REDUCERS [Concomitant]
     Indication: BLOOD CHOLESTEROL DECREASED
     Dosage: UNK, UNKNOWN
     Route: 065

REACTIONS (4)
  - CENTRAL VENOUS CATHETERISATION [None]
  - MULTIPLE SCLEROSIS [None]
  - MUSCLE ATROPHY [None]
  - TREMOR [None]
